FAERS Safety Report 19901567 (Version 3)
Quarter: 2022Q3

REPORT INFORMATION
  Report Type: Spontaneous
  Country: AU (occurrence: AU)
  Receive Date: 20210929
  Receipt Date: 20220828
  Transmission Date: 20221027
  Serious: Yes (Death, Other)
  Sender: FDA-Public Use
  Company Number: NVSC2021AU219068

PATIENT
  Age: 41 Year
  Sex: Female
  Weight: 53.3 kg

DRUGS (3)
  1. KYMRIAH [Suspect]
     Active Substance: TISAGENLECLEUCEL
     Indication: Diffuse large B-cell lymphoma
     Dosage: UNK UNK, ONCE/SINGLE
     Route: 042
     Dates: start: 20210916
  2. FLUDARABINE [Concomitant]
     Active Substance: FLUDARABINE PHOSPHATE
     Indication: Lymphodepletion
     Dosage: 25 MG/M2
     Route: 065
     Dates: start: 20210910, end: 20210912
  3. CYCLOPHOSPHAMIDE [Concomitant]
     Active Substance: CYCLOPHOSPHAMIDE
     Indication: Lymphodepletion
     Dosage: 250 MG/M2, QD
     Route: 065
     Dates: start: 20210910, end: 20210912

REACTIONS (11)
  - Death [Fatal]
  - Cytokine release syndrome [Recovered/Resolved]
  - Pyrexia [Recovered/Resolved]
  - Chills [Recovered/Resolved]
  - Chills [Recovered/Resolved]
  - Pyrexia [Recovered/Resolved]
  - Blood pressure systolic decreased [Recovered/Resolved]
  - Sepsis [Recovered/Resolved]
  - Idiosyncratic drug reaction [Unknown]
  - Flushing [Unknown]
  - Therapeutic product effect incomplete [Unknown]

NARRATIVE: CASE EVENT DATE: 20210916
